FAERS Safety Report 13775636 (Version 2)
Quarter: 2017Q4

REPORT INFORMATION
  Report Type: Spontaneous
  Country: US (occurrence: US)
  Receive Date: 20170720
  Receipt Date: 20171219
  Transmission Date: 20180320
  Serious: No
  Sender: FDA-Public Use
  Company Number: US-BAUSCH-BL-2016-019561

PATIENT
  Age: 58 Year
  Sex: Male

DRUGS (2)
  1. DUREZOL [Concomitant]
     Active Substance: DIFLUPREDNATE
     Indication: PRODUCT USED FOR UNKNOWN INDICATION
     Dosage: IN LEFT EYE
     Route: 047
  2. BESIVANCE [Suspect]
     Active Substance: BESIFLOXACIN
     Indication: PRODUCT USED FOR UNKNOWN INDICATION
     Dosage: IN LEFT EYE
     Route: 047

REACTIONS (2)
  - Product quality issue [Unknown]
  - Accidental exposure to product [Unknown]
